FAERS Safety Report 5697815-9 (Version None)
Quarter: 2008Q2

REPORT INFORMATION
  Report Type: 
  Country: None (occurrence: None)
  Receive Date: 20080404
  Receipt Date: 20080404
  Transmission Date: 20081010
  Serious: Yes (Other)
  Sender: FDA-Public Use
  Company Number: None

PATIENT
  Age: 8 Year
  Sex: Male
  Weight: 34.0198 kg

DRUGS (1)
  1. SINGULAIR [Suspect]
     Indication: ASTHMA
     Dosage: 1 DAILY PO
     Route: 048
     Dates: start: 20020801, end: 20080310

REACTIONS (3)
  - ANXIETY [None]
  - EMOTIONAL DISORDER [None]
  - MOOD SWINGS [None]
